FAERS Safety Report 7930001-8 (Version None)
Quarter: 2011Q4

REPORT INFORMATION
  Report Type: 
  Country: None (occurrence: None)
  Receive Date: 20111121
  Receipt Date: 20111108
  Transmission Date: 20120403
  Serious: Yes (Hospitalization, Other)
  Sender: FDA-Public Use
  Company Number: PHFR2011GB05634

PATIENT
  Sex: Female

DRUGS (6)
  1. REBOXETINE [Concomitant]
     Dosage: 8 MG, DAILY
     Route: 048
  2. CLOZARIL [Suspect]
     Indication: SCHIZOPHRENIA
     Route: 048
     Dates: start: 20100604
  3. LITHIUM CARBONATE [Concomitant]
     Dosage: 60 MG, DAILY
     Route: 048
  4. LACTULOSE [Concomitant]
     Route: 065
  5. CITALOPRAM HYDROBROMIDE [Concomitant]
     Dosage: 60 MG, DAILY
     Route: 065
  6. MANICOL [Concomitant]
     Route: 065

REACTIONS (2)
  - GASTRIC HYPOMOTILITY [None]
  - CONSTIPATION [None]
